FAERS Safety Report 7648608-4 (Version None)
Quarter: 2011Q3

REPORT INFORMATION
  Report Type: 
  Country: None (occurrence: None)
  Receive Date: 20110801
  Receipt Date: 20110719
  Transmission Date: 20111222
  Serious: Yes (Disabling)
  Sender: FDA-Public Use
  Company Number: PHHY2011DE66392

PATIENT
  Age: 42 Year
  Sex: Male
  Weight: 88 kg

DRUGS (5)
  1. THYRONAJOD [Concomitant]
     Dosage: 75 UG, QD
  2. AMISULPRIDE [Concomitant]
     Dosage: 400 MG, TWICE DAILY
  3. BISOPROLOL FUMARATE [Concomitant]
     Indication: HYPERTENSION
     Dosage: 5 MG, BID
  4. CLOZAPINE [Suspect]
     Indication: SCHIZOPHRENIA
     Dosage: 100 MG, BID
     Route: 048
  5. EPROSARTAN [Concomitant]
     Indication: HYPERTENSION
     Dosage: 600 MG, QD

REACTIONS (4)
  - NEPHROSCLEROSIS [None]
  - TUBULOINTERSTITIAL NEPHRITIS [None]
  - ILEUS [None]
  - BLOOD CREATININE INCREASED [None]
